FAERS Safety Report 6524274-6 (Version None)
Quarter: 2009Q4

REPORT INFORMATION
  Report Type: 
  Country: None (occurrence: None)
  Receive Date: 20091231
  Receipt Date: 20091221
  Transmission Date: 20100525
  Serious: Yes (Death)
  Sender: FDA-Public Use
  Company Number: JP-ABBOTT-09P-087-0617147-00

PATIENT
  Age: 77 Year
  Sex: Male

DRUGS (13)
  1. LEUPLIN SR FOR INJECTION 11.25 MG [Suspect]
     Indication: PROSTATE CANCER STAGE II
     Route: 058
     Dates: start: 20070514, end: 20081110
  2. BICALUTAMIDE [Concomitant]
     Indication: PROSTATE CANCER STAGE II
     Route: 048
     Dates: end: 20090103
  3. MENESIT [Concomitant]
     Indication: PARKINSON'S DISEASE
     Route: 048
     Dates: end: 20090103
  4. DOPS [Concomitant]
     Indication: PARKINSON'S DISEASE
     Route: 048
     Dates: end: 20090103
  5. BONALON [Concomitant]
     Indication: OSTEOPOROSIS
     Route: 048
     Dates: end: 20090103
  6. ASPARA-CA [Concomitant]
     Indication: OSTEOPOROSIS
     Route: 048
     Dates: end: 20090103
  7. GLAKAY [Concomitant]
     Indication: OSTEOPOROSIS
     Route: 048
     Dates: end: 20090103
  8. VOLTAREN [Concomitant]
     Indication: ARTHRITIS
     Route: 062
     Dates: end: 20090103
  9. LOXONIN [Concomitant]
     Indication: OSTEOARTHRITIS
     Route: 048
     Dates: start: 20080107, end: 20090103
  10. MUCOSTA [Concomitant]
     Indication: PROPHYLAXIS
     Route: 048
     Dates: start: 20080107, end: 20090103
  11. MUCOSTA [Concomitant]
     Indication: ADVERSE EVENT
  12. PRAMIPEXOLE DIHYDROCHLORIDE [Concomitant]
     Indication: PARKINSON'S DISEASE
     Route: 048
     Dates: start: 20071126, end: 20090103
  13. SYMMETREL [Concomitant]
     Indication: PARKINSON'S DISEASE
     Route: 048
     Dates: start: 20080611, end: 20090103

REACTIONS (1)
  - DROWNING [None]
